FAERS Safety Report 5391907-X (Version None)
Quarter: 2007Q3

REPORT INFORMATION
  Report Type: 
  Country: None (occurrence: None)
  Receive Date: 20070720
  Receipt Date: 20070710
  Transmission Date: 20080115
  Serious: Yes (Hospitalization, Other)
  Sender: FDA-Public Use
  Company Number: JP-JNJFOC-20070200242

PATIENT
  Sex: Male
  Weight: 58 kg

DRUGS (7)
  1. REMICADE [Suspect]
     Route: 042
  2. REMICADE [Suspect]
     Route: 042
  3. REMICADE [Suspect]
     Route: 042
  4. REMICADE [Suspect]
     Indication: CROHN'S DISEASE
     Dosage: 3 INFUSIONS ON UNKNOWN DATES
     Route: 042
  5. INTRALIPID 10% [Suspect]
     Indication: MALNUTRITION
  6. PENTASA [Concomitant]
     Indication: CROHN'S DISEASE
     Route: 048
  7. ELENTAL [Concomitant]
     Indication: CROHN'S DISEASE

REACTIONS (2)
  - GASTROENTERITIS [None]
  - SYSTEMIC LUPUS ERYTHEMATOSUS RASH [None]
